FAERS Safety Report 23496188 (Version 1)
Quarter: 2024Q1

REPORT INFORMATION
  Report Type: Spontaneous
  Country: US (occurrence: None)
  Receive Date: 20240207
  Receipt Date: 20240207
  Transmission Date: 20240410
  Serious: No
  Sender: FDA-Public Use
  Company Number: US-ROCHE-3459448

PATIENT

DRUGS (3)
  1. XOLAIR [Suspect]
     Active Substance: OMALIZUMAB
     Indication: Product used for unknown indication
     Route: 065
  2. TEZSPIRE (UNITED STATES) [Concomitant]
  3. DUPIXENT [Concomitant]
     Active Substance: DUPILUMAB

REACTIONS (6)
  - COVID-19 [Unknown]
  - Pain [Unknown]
  - Back pain [Unknown]
  - Pain in extremity [Unknown]
  - Drug ineffective [Unknown]
  - Pulmonary function test decreased [Unknown]

NARRATIVE: CASE EVENT DATE: 20200101
